FAERS Safety Report 5969377-X (Version None)
Quarter: 2008Q4

REPORT INFORMATION
  Report Type: 
  Country: None (occurrence: None)
  Receive Date: 20081126
  Receipt Date: 20081119
  Transmission Date: 20090506
  Serious: Yes (Hospitalization)
  Sender: FDA-Public Use
  Company Number: AU-WATSON-2008-06890

PATIENT
  Age: 53 Year
  Sex: Male

DRUGS (3)
  1. BUPROPION HYDROCHLORIDE [Suspect]
     Indication: SMOKING CESSATION THERAPY
     Dosage: 150 MG, BID
     Route: 048
  2. METOPROLOL (WATSON LABORATORIES) [Suspect]
     Indication: HYPERTENSION
     Dosage: 50 MG, BID
  3. PAROXETINE HCL [Suspect]
     Indication: DEPRESSION

REACTIONS (2)
  - BRADYCARDIA [None]
  - DRUG INTERACTION [None]
